FAERS Safety Report 19468468 (Version 3)
Quarter: 2021Q3

REPORT INFORMATION
  Report Type: Spontaneous
  Country: ES (occurrence: ES)
  Receive Date: 20210628
  Receipt Date: 20210713
  Transmission Date: 20211014
  Serious: Yes (Other)
  Sender: FDA-Public Use
  Company Number: ES-ROCHE-2855570

PATIENT
  Sex: Female

DRUGS (5)
  1. QUETIAPINE. [Suspect]
     Active Substance: QUETIAPINE
     Indication: PRODUCT USED FOR UNKNOWN INDICATION
     Route: 065
  2. LAMICTAL [Suspect]
     Active Substance: LAMOTRIGINE
     Route: 065
     Dates: start: 20210620
  3. LAMICTAL [Suspect]
     Active Substance: LAMOTRIGINE
     Indication: PRODUCT USED FOR UNKNOWN INDICATION
     Route: 065
     Dates: start: 20210414
  4. LAMICTAL [Suspect]
     Active Substance: LAMOTRIGINE
     Route: 065
     Dates: start: 20210422
  5. RIVOTRIL [Suspect]
     Active Substance: CLONAZEPAM
     Indication: PRODUCT USED FOR UNKNOWN INDICATION
     Route: 065

REACTIONS (26)
  - Hypersensitivity [Unknown]
  - Lymphadenopathy [Unknown]
  - Dizziness [Unknown]
  - Diplopia [Unknown]
  - Headache [Not Recovered/Not Resolved]
  - Eosinophil count increased [Unknown]
  - Pyrexia [Unknown]
  - Ocular discomfort [Not Recovered/Not Resolved]
  - Oropharyngeal pain [Unknown]
  - Leukopenia [Unknown]
  - Haemophagocytic lymphohistiocytosis [Unknown]
  - Immunodeficiency [Unknown]
  - Infection [Unknown]
  - Lip exfoliation [Unknown]
  - Lip haemorrhage [Not Recovered/Not Resolved]
  - Rash [Not Recovered/Not Resolved]
  - Weight decreased [Not Recovered/Not Resolved]
  - Drug hypersensitivity [Unknown]
  - Dermatitis atopic [Unknown]
  - Eye swelling [Unknown]
  - Contusion [Unknown]
  - Fatigue [Not Recovered/Not Resolved]
  - Haemorrhage [Unknown]
  - Ocular hyperaemia [Unknown]
  - Vision blurred [Unknown]
  - Cutaneous symptom [Not Recovered/Not Resolved]

NARRATIVE: CASE EVENT DATE: 202105
